FAERS Safety Report 6504576-X (Version None)
Quarter: 2009Q4

REPORT INFORMATION
  Report Type: 
  Country: None (occurrence: None)
  Receive Date: 20091215
  Receipt Date: 20091209
  Transmission Date: 20100525
  Serious: Yes (Other)
  Sender: FDA-Public Use
  Company Number: 2009029600

PATIENT
  Age: 33 Year
  Sex: Male

DRUGS (3)
  1. NUVIGIL [Suspect]
     Indication: SLEEP APNOEA SYNDROME
     Dosage: 250 MG (250 MG, QAM), ORAL
     Route: 048
     Dates: start: 20091203, end: 20091208
  2. SIMVASTATIN [Concomitant]
  3. CELEXA [Concomitant]

REACTIONS (8)
  - CHEILITIS [None]
  - CHEST PAIN [None]
  - HYPERTENSION [None]
  - ORAL PAIN [None]
  - OROPHARYNGEAL PAIN [None]
  - RASH [None]
  - SKIN EXFOLIATION [None]
  - STOMATITIS [None]
